FAERS Safety Report 21311859 (Version 1)
Quarter: 2022Q3

REPORT INFORMATION
  Report Type: Spontaneous
  Country: US (occurrence: None)
  Receive Date: 20220909
  Receipt Date: 20220909
  Transmission Date: 20221026
  Serious: No
  Sender: FDA-Public Use
  Company Number: US-ARIS GLOBAL-202203-0552

PATIENT
  Sex: Female

DRUGS (16)
  1. OXERVATE [Suspect]
     Active Substance: CENEGERMIN-BKBJ
     Indication: Neurotrophic keratopathy
     Route: 047
     Dates: start: 20220326
  2. ZIOPTAN [Concomitant]
     Active Substance: TAFLUPROST
     Dosage: 0.0015 % DROPERETTE.
  3. MIRALAX [Concomitant]
     Active Substance: POLYETHYLENE GLYCOL 3350
     Dosage: 17 GR/DOSE POWDER
  4. SALAGEN [Concomitant]
     Active Substance: PILOCARPINE HYDROCHLORIDE
  5. PANTOPRAZOLE SODIUM [Concomitant]
     Active Substance: PANTOPRAZOLE SODIUM
     Dosage: 20 MG DELAYED-RELEASE TABLETS
  6. VITAMINS [Concomitant]
     Active Substance: VITAMINS
  7. SINGULAIR [Concomitant]
     Active Substance: MONTELUKAST SODIUM
  8. MELOXICAM [Concomitant]
     Active Substance: MELOXICAM
  9. LOTEPREDNOL ETABONATE [Concomitant]
     Active Substance: LOTEPREDNOL ETABONATE
  10. XIIDRA [Concomitant]
     Active Substance: LIFITEGRAST
     Dosage: 5% DROPERETTE
  11. ACULAR [Concomitant]
     Active Substance: KETOROLAC TROMETHAMINE
  12. FEXOFENADINE HCL [Concomitant]
     Active Substance: FEXOFENADINE HYDROCHLORIDE
  13. CEPHALEXIN [Concomitant]
     Active Substance: CEPHALEXIN
  14. SYMBICORT [Concomitant]
     Active Substance: BUDESONIDE\FORMOTEROL FUMARATE DIHYDRATE
     Dosage: 160 - 4,5 MICROGRAM HFA AER AD
  15. DULCOLAX NOS [Concomitant]
     Active Substance: BISACODYL OR DOCUSATE SODIUM
     Dosage: 10 MG SUPPOSITORY RECTAL
  16. AZELASTINE HYDROCHLORIDE\FLUTICASONE PROPIONATE [Concomitant]
     Active Substance: AZELASTINE HYDROCHLORIDE\FLUTICASONE PROPIONATE

REACTIONS (2)
  - Eye swelling [Unknown]
  - Eye pain [Unknown]
